FAERS Safety Report 5626853-7 (Version None)
Quarter: 2008Q1

REPORT INFORMATION
  Report Type: 
  Country: None (occurrence: None)
  Receive Date: 20080212
  Receipt Date: 20080129
  Transmission Date: 20080703
  Serious: Yes (Hospitalization)
  Sender: FDA-Public Use
  Company Number: 2007BI023715

PATIENT
  Age: 64 Year
  Sex: Female

DRUGS (29)
  1. AVONEX [Suspect]
     Indication: MULTIPLE SCLEROSIS
     Dosage: 30 UG;QW; IM
     Route: 030
     Dates: start: 20050301
  2. PLAVIX [Concomitant]
  3. RANEXA [Concomitant]
  4. ASPIRIN [Concomitant]
  5. ALTACE [Concomitant]
  6. ALAVERT [Concomitant]
  7. ALBUTEROL [Concomitant]
  8. BACLOFEN [Concomitant]
  9. CITRACAL PLUS [Concomitant]
  10. CLONAZEPAM [Concomitant]
  11. CRESTOR [Concomitant]
  12. VITAMIN B-12 [Concomitant]
  13. ENABLEX [Concomitant]
  14. PROZAC [Concomitant]
  15. FORTEO [Concomitant]
  16. GABAPENTIN [Concomitant]
  17. IMODIUM [Concomitant]
  18. IRON [Concomitant]
  19. LEVOXYL [Concomitant]
  20. LORAZEPAM [Concomitant]
  21. MECLIZINE [Concomitant]
  22. MIRAPEX [Concomitant]
  23. MULTI-VITAMIN [Concomitant]
  24. NITROGLYCERIN [Concomitant]
  25. PRILOSEC [Concomitant]
  26. PROVIGIL [Concomitant]
  27. TYLENOL (CAPLET) [Concomitant]
  28. VITAMIN D [Concomitant]
  29. DIAZEPAM [Concomitant]

REACTIONS (4)
  - CARDIAC FAILURE CONGESTIVE [None]
  - INTERSTITIAL LUNG DISEASE [None]
  - PULMONARY OEDEMA [None]
  - RESPIRATORY FAILURE [None]
